FAERS Safety Report 21109260 (Version 1)
Quarter: 2022Q3

REPORT INFORMATION
  Report Type: Spontaneous
  Country: GB (occurrence: None)
  Receive Date: 20220721
  Receipt Date: 20220721
  Transmission Date: 20221026
  Serious: Yes (Other)
  Sender: FDA-Public Use
  Company Number: GB-MHRA-MED-202207111622308230-HDRCY

PATIENT
  Age: 70 Year
  Sex: Female

DRUGS (2)
  1. METFORMIN [Suspect]
     Active Substance: METFORMIN HYDROCHLORIDE
     Indication: Diabetes mellitus
     Dates: start: 20220625, end: 20220701
  2. LEVOTHYROXINE SODIUM [Concomitant]
     Active Substance: LEVOTHYROXINE SODIUM
     Indication: Hypothyroidism
     Dates: start: 20050601

REACTIONS (6)
  - Feeding disorder [Unknown]
  - Nausea [Recovered/Resolved]
  - Vomiting [Unknown]
  - Erythema [Unknown]
  - Urticaria [Unknown]
  - Pruritus [Unknown]

NARRATIVE: CASE EVENT DATE: 20220701
